FAERS Safety Report 4589236-7 (Version None)
Quarter: 2005Q1

REPORT INFORMATION
  Report Type: 
  Country: None (occurrence: None)
  Receive Date: 20050216
  Receipt Date: 20050208
  Transmission Date: 20050727
  Serious: Yes (Death)
  Sender: FDA-Public Use
  Company Number: 211658

PATIENT
  Age: 69 Year
  Sex: Female
  Weight: 55.3 kg

DRUGS (1)
  1. XOLAIR [Suspect]
     Indication: ASTHMA
     Dosage: 300 MG, Q4W, SUBCUTANEOUS
     Route: 058
     Dates: start: 20030930, end: 20041116

REACTIONS (1)
  - CEREBROVASCULAR ACCIDENT [None]
